FAERS Safety Report 24815598 (Version 1)
Quarter: 2025Q1

REPORT INFORMATION
  Report Type: Spontaneous
  Country: PL (occurrence: PL)
  Receive Date: 20250107
  Receipt Date: 20250107
  Transmission Date: 20250409
  Serious: Yes (Hospitalization, Other)
  Sender: PFIZER
  Company Number: PL-PFIZER INC-PV202400170722

PATIENT
  Age: 37 Year
  Sex: Female
  Weight: 86 kg

DRUGS (4)
  1. MEDROXYPROGESTERONE ACETATE [Suspect]
     Active Substance: MEDROXYPROGESTERONE ACETATE
     Indication: Contraception
  2. NORETHINDRONE ACETATE [Concomitant]
     Active Substance: NORETHINDRONE ACETATE
     Indication: Menstruation irregular
     Dosage: 10 MG, DAILY
  3. NORETHINDRONE ACETATE [Concomitant]
     Active Substance: NORETHINDRONE ACETATE
     Indication: Insulin resistance
  4. METFORMIN HYDROCHLORIDE [Concomitant]
     Active Substance: METFORMIN HYDROCHLORIDE
     Indication: Blood glucose
     Dosage: 500 MG, DAILY

REACTIONS (8)
  - Deep vein thrombosis [Unknown]
  - Menstruation irregular [Unknown]
  - Spherocytic anaemia [Unknown]
  - Hypothalamo-pituitary disorder [Unknown]
  - Osteopenia [Unknown]
  - Osteoporosis [Unknown]
  - Insulin resistance [Unknown]
  - Impaired fasting glucose [Unknown]
